FAERS Safety Report 5688955-9 (Version None)
Quarter: 2008Q1

REPORT INFORMATION
  Report Type: 
  Country: None (occurrence: None)
  Receive Date: 20080331
  Receipt Date: 20070418
  Transmission Date: 20080703
  Serious: Yes (Death)
  Sender: FDA-Public Use
  Company Number: DE-ROCHE-445057

PATIENT
  Age: 50 Year
  Sex: Male
  Weight: 67 kg

DRUGS (2)
  1. VALCYTE [Suspect]
     Route: 048
     Dates: start: 20040815
  2. ACYCLOVIR [Concomitant]

REACTIONS (2)
  - DEATH [None]
  - LEUKOPENIA [None]
